FAERS Safety Report 20855471 (Version 1)
Quarter: 2022Q2

REPORT INFORMATION
  Report Type: Spontaneous
  Country: US (occurrence: US)
  Receive Date: 20220520
  Receipt Date: 20220520
  Transmission Date: 20220720
  Serious: No
  Sender: FDA-Public Use
  Company Number: US-PFIZER INC-202200404123

PATIENT

DRUGS (2)
  1. GEODON [Suspect]
     Active Substance: ZIPRASIDONE HYDROCHLORIDE\ZIPRASIDONE MESYLATE
     Dosage: 40 MG, 1X/DAY, 40 MG IN THE EVENING ONLY
  2. CLOZARIL [Concomitant]
     Active Substance: CLOZAPINE
     Dosage: 50 MG, 1X/DAY (IN THE EVENING ONCE A DAY)

REACTIONS (4)
  - Off label use [Unknown]
  - Somnolence [Unknown]
  - Sluggishness [Unknown]
  - Decreased appetite [Unknown]
